FAERS Safety Report 7101372-X (Version None)
Quarter: 2010Q4

REPORT INFORMATION
  Report Type: 
  Country: None (occurrence: None)
  Receive Date: 20101115
  Receipt Date: 20091120
  Transmission Date: 20110411
  Serious: No
  Sender: FDA-Public Use
  Company Number: US-PFIZER INC-2009301447

PATIENT
  Age: 80 Year
  Sex: Female
  Weight: 54.4 kg

DRUGS (2)
  1. MEDROL [Suspect]
     Indication: NERVE COMPRESSION
     Dosage: UNK
     Dates: start: 20091113
  2. DEXLANSOPRAZOLE [Suspect]
     Dates: start: 20091101, end: 20091118

REACTIONS (2)
  - DYSPEPSIA [None]
  - INSOMNIA [None]
